FAERS Safety Report 7658791-2 (Version None)
Quarter: 2011Q3

REPORT INFORMATION
  Report Type: 
  Country: None (occurrence: None)
  Receive Date: 20110805
  Receipt Date: 20110805
  Transmission Date: 20111222
  Serious: Yes (Other)
  Sender: FDA-Public Use
  Company Number: None

PATIENT
  Age: 84 Year
  Sex: Female
  Weight: 61.234 kg

DRUGS (1)
  1. TOPCARE-R- ACETAMINOPHEN [Suspect]
     Indication: ARTHRALGIA
     Dosage: 500 MG
     Route: 048

REACTIONS (4)
  - PRODUCT SUBSTITUTION ISSUE [None]
  - DISCOMFORT [None]
  - CHROMATURIA [None]
  - NAUSEA [None]
